APPROVED DRUG PRODUCT: AMLODIPINE BESYLATE
Active Ingredient: AMLODIPINE BESYLATE
Strength: EQ 2.5MG BASE
Dosage Form/Route: TABLET;ORAL
Application: A076692 | Product #001 | TE Code: AB
Applicant: CHARTWELL RX SCIENCES LLC
Approved: Jul 20, 2007 | RLD: No | RS: No | Type: RX